FAERS Safety Report 7268724-9 (Version None)
Quarter: 2011Q1

REPORT INFORMATION
  Report Type: 
  Country: None (occurrence: None)
  Receive Date: 20110201
  Receipt Date: 20110125
  Transmission Date: 20110831
  Serious: Yes (Hospitalization, Other)
  Sender: FDA-Public Use
  Company Number: US-ELI_LILLY_AND_COMPANY-US201101006616

PATIENT
  Sex: Female

DRUGS (1)
  1. HUMULIN N [Suspect]
     Indication: DIABETES MELLITUS

REACTIONS (6)
  - PNEUMONIA [None]
  - MACULAR DEGENERATION [None]
  - ROAD TRAFFIC ACCIDENT [None]
  - FALL [None]
  - VISUAL ACUITY REDUCED [None]
  - MULTIPLE INJURIES [None]
